FAERS Safety Report 13305193 (Version 2)
Quarter: 2017Q3

REPORT INFORMATION
  Report Type: Spontaneous
  Country: US (occurrence: US)
  Receive Date: 20170308
  Receipt Date: 20170727
  Transmission Date: 20171127
  Serious: Yes (Life-Threatening, Hospitalization, Other)
  Sender: FDA-Public Use
  Company Number: US-WEST-WARD PHARMACEUTICALS CORP.-US-H14001-17-00547

PATIENT
  Age: 6 Decade
  Sex: Female

DRUGS (7)
  1. HYDROMORPHONE [Suspect]
     Active Substance: HYDROMORPHONE
     Indication: BACK PAIN
     Dosage: INTRATHECAL PUMP
     Route: 037
  2. OXYCODONE [Suspect]
     Active Substance: OXYCODONE
     Indication: BACK PAIN
     Dosage: DOSE HAD ESCALATED NEARLY 9-FOLD TO 780 MG MEDD
     Route: 065
  3. OXYCODONE [Suspect]
     Active Substance: OXYCODONE
     Dosage: 90 MG OF MORPHINE EQUIVALENT DAILY DOSE (MEDD)
     Route: 065
  4. OXYCODONE [Suspect]
     Active Substance: OXYCODONE
     Dosage: 90 MG OF MORPHINE EQUIVALENT DAILY DOSE (MEDD)
     Route: 065
  5. BACLOFEN. [Suspect]
     Active Substance: BACLOFEN
     Indication: BACK PAIN
     Dosage: INTRATHECAL PUMP
     Route: 037
  6. OXYCODONE [Suspect]
     Active Substance: OXYCODONE
     Dosage: 90 MG OF MORPHINE EQUIVALENT DAILY DOSE (MEDD)
     Route: 065
  7. OXYCODONE [Suspect]
     Active Substance: OXYCODONE
     Dosage: 90 MG OF MORPHINE EQUIVALENT DAILY DOSE (MEDD)
     Route: 065

REACTIONS (1)
  - Respiratory failure [Unknown]
